FAERS Safety Report 12711636 (Version 1)
Quarter: 2016Q3

REPORT INFORMATION
  Report Type: Spontaneous
  Country: US (occurrence: US)
  Receive Date: 20160902
  Receipt Date: 20160902
  Transmission Date: 20161109
  Serious: No
  Sender: FDA-Public Use
  Company Number: None

PATIENT
  Sex: Female

DRUGS (1)
  1. IBRANCE [Suspect]
     Active Substance: PALBOCICLIB
     Indication: BREAST CANCER
     Dosage: 125 MG DAILY FOR 21 DAYS, 7 DAYS OFF ORALLY
     Route: 048
     Dates: start: 20151110

REACTIONS (4)
  - Dysgeusia [None]
  - Rash pruritic [None]
  - Oral disorder [None]
  - Sensory disturbance [None]
